FAERS Safety Report 7442016-7 (Version None)
Quarter: 2011Q2

REPORT INFORMATION
  Report Type: 
  Country: None (occurrence: None)
  Receive Date: 20110428
  Receipt Date: 20101208
  Transmission Date: 20111010
  Serious: Yes (Hospitalization)
  Sender: FDA-Public Use
  Company Number: US-BAYER-201024012NA

PATIENT
  Age: 45 Year
  Sex: Female
  Weight: 104.31 kg

DRUGS (4)
  1. IRON COMPLEX [Concomitant]
  2. YASMIN [Suspect]
     Indication: PREMENSTRUAL SYNDROME
     Dosage: UNK UNK, UNK
     Route: 048
     Dates: start: 20070606, end: 20080501
  3. PRINZIDE [Concomitant]
  4. OCELLA [Suspect]
     Indication: PREMENSTRUAL SYNDROME
     Dosage: UNK UNK, UNK
     Route: 048
     Dates: start: 20080815

REACTIONS (4)
  - PAIN [None]
  - GALLBLADDER INJURY [None]
  - CHOLECYSTITIS [None]
  - EMOTIONAL DISTRESS [None]
